FAERS Safety Report 9159603 (Version 1)
Quarter: 2013Q1

REPORT INFORMATION
  Report Type: Spontaneous
  Country: US (occurrence: US)
  Receive Date: 20130313
  Receipt Date: 20130313
  Transmission Date: 20140127
  Serious: No
  Sender: FDA-Public Use
  Company Number: US-BAYER-2013-020290

PATIENT
  Age: 57 Year
  Sex: Female

DRUGS (4)
  1. CIPRO [Suspect]
  2. AMBIEN [Concomitant]
  3. XANAX [Concomitant]
  4. VYVANSE [Concomitant]

REACTIONS (1)
  - Drug hypersensitivity [None]
